FAERS Safety Report 6945917-9 (Version None)
Quarter: 2010Q3

REPORT INFORMATION
  Report Type: 
  Country: None (occurrence: None)
  Receive Date: 20100827
  Receipt Date: 20100819
  Transmission Date: 20110219
  Serious: Yes (Hospitalization)
  Sender: FDA-Public Use
  Company Number: Z0004538C

PATIENT
  Age: 59 Year
  Sex: Male
  Weight: 84.5 kg

DRUGS (8)
  1. OFATUMUMAB [Suspect]
     Indication: LYMPHOMA
     Route: 042
     Dates: start: 20100429
  2. ETOPOSIDE [Suspect]
     Indication: LYMPHOMA
     Dosage: 100MGM2 CYCLIC
     Route: 042
     Dates: start: 20100630
  3. IFOSFAMIDE [Suspect]
     Indication: LYMPHOMA
     Route: 042
     Dates: start: 20100701
  4. MESNA [Suspect]
     Indication: LYMPHOMA
     Dosage: 5000MGM2 PER DAY
     Route: 042
     Dates: start: 20100701
  5. CARBOPLATIN [Suspect]
     Indication: LYMPHOMA
     Route: 042
     Dates: start: 20100701
  6. DEXAMETHASONE [Suspect]
     Indication: LYMPHOMA
     Route: 042
     Dates: start: 20100429
  7. CISPLATIN [Suspect]
     Indication: LYMPHOMA
     Dosage: 100MGM2 PER DAY
     Route: 042
     Dates: start: 20100430, end: 20100522
  8. CYTARABINE [Suspect]
     Indication: LYMPHOMA
     Route: 042
     Dates: start: 20100501

REACTIONS (1)
  - KLEBSIELLA SEPSIS [None]
